FAERS Safety Report 9208701 (Version 2)
Quarter: 2013Q3

REPORT INFORMATION
  Report Type: Spontaneous
  Country: US (occurrence: None)
  Receive Date: 20120817
  Receipt Date: 20130815
  Transmission Date: 20140515
  Serious: Yes (Other)
  Sender: FDA-Public Use
  Company Number: ADR-2012-00915

PATIENT
  Sex: Male

DRUGS (1)
  1. LIORESAL INTRATHECAL (BACLOFEN INJECTION) [Suspect]

REACTIONS (6)
  - Pyrexia [None]
  - Implant site extravasation [None]
  - Drug withdrawal syndrome [None]
  - Muscle spasms [None]
  - Urinary tract infection [None]
  - Incorrect route of drug administration [None]
